FAERS Safety Report 7417465-3 (Version None)
Quarter: 2011Q2

REPORT INFORMATION
  Report Type: 
  Country: None (occurrence: None)
  Receive Date: 20110415
  Receipt Date: 20110413
  Transmission Date: 20111010
  Serious: Yes (Other)
  Sender: FDA-Public Use
  Company Number: US-PFIZER INC-2011081695

PATIENT
  Sex: Female
  Weight: 70.3 kg

DRUGS (1)
  1. LIPITOR [Suspect]
     Indication: BLOOD CHOLESTEROL INCREASED
     Dosage: 5 MG, DAILY
     Route: 048
     Dates: start: 20030101, end: 20110410

REACTIONS (12)
  - PARATHYROID TUMOUR [None]
  - BLOOD CHOLESTEROL INCREASED [None]
  - BODY TEMPERATURE INCREASED [None]
  - DRUG INEFFECTIVE [None]
  - FATIGUE [None]
  - ARTHRITIS [None]
  - WEIGHT INCREASED [None]
  - STRESS [None]
  - BLOOD CALCIUM INCREASED [None]
  - DEPRESSION [None]
  - PAIN [None]
  - HYPERTHYROIDISM [None]
